FAERS Safety Report 8553049-1 (Version None)
Quarter: 2012Q3

REPORT INFORMATION
  Report Type: 
  Country: None (occurrence: None)
  Receive Date: 20120724
  Receipt Date: 20120724
  Transmission Date: 20120928
  Serious: Yes (Disabling)
  Sender: FDA-Public Use
  Company Number: None

PATIENT
  Age: 32 Year
  Sex: Female
  Weight: 58.9676 kg

DRUGS (2)
  1. RISPERIDONE [Suspect]
     Indication: BIPOLAR DISORDER
     Dosage: 2 MG, BY MOUTH
     Dates: start: 20090731
  2. RISPERIDONE [Suspect]
     Indication: BIPOLAR DISORDER
     Dosage: 1 MG, BY MOUTH
     Dates: start: 20090707, end: 20090928

REACTIONS (5)
  - NO THERAPEUTIC RESPONSE [None]
  - MENSTRUATION DELAYED [None]
  - PRODUCT SUBSTITUTION ISSUE [None]
  - DYSMENORRHOEA [None]
  - AMENORRHOEA [None]
